FAERS Safety Report 7732828-4 (Version None)
Quarter: 2011Q3

REPORT INFORMATION
  Report Type: 
  Country: None (occurrence: None)
  Receive Date: 20110901
  Receipt Date: 20110818
  Transmission Date: 20111222
  Serious: Yes (Other)
  Sender: FDA-Public Use
  Company Number: 2011MA012388

PATIENT
  Age: 47 Year
  Sex: Male

DRUGS (2)
  1. CLOZAPINE [Suspect]
     Indication: SCHIZOPHRENIA
     Dosage: 450 MG; QD; PO
     Route: 048
  2. FLUOXETINE [Suspect]
     Dosage: 40 MG; QD;

REACTIONS (9)
  - DECREASED APPETITE [None]
  - DRUG INTERACTION [None]
  - WEIGHT DECREASED [None]
  - ABDOMINAL PAIN [None]
  - HYPERHIDROSIS [None]
  - COUGH [None]
  - DIARRHOEA [None]
  - LETHARGY [None]
  - BLOOD ALKALINE PHOSPHATASE INCREASED [None]
